FAERS Safety Report 18260488 (Version 1)
Quarter: 2020Q3

REPORT INFORMATION
  Report Type: Spontaneous
  Country: EE (occurrence: EE)
  Receive Date: 20200914
  Receipt Date: 20200914
  Transmission Date: 20201103
  Serious: Yes (Hospitalization, Other)
  Sender: FDA-Public Use
  Company Number: EE-TEVA-2020-EE-1825676

PATIENT
  Age: 6 Month
  Sex: Female

DRUGS (3)
  1. DIAZEPAM. [Suspect]
     Active Substance: DIAZEPAM
     Indication: PRODUCT USED FOR UNKNOWN INDICATION
     Dosage: UNK
     Dates: start: 19990413
  2. POLIOMYELITIS VACCINE (ORAL) [Suspect]
     Active Substance: POLIOMYELITIS VACCINE
     Indication: IMMUNISATION
     Dosage: 2 GTT
     Route: 048
     Dates: start: 19990413, end: 19990413
  3. DIPHTHERIA AND TETANUS TOXOIDS AND PERTUSSIS VACCINE ADSORBED NOS [Suspect]
     Active Substance: DIPHTHERIA AND TETANUS TOXOIDS AND PERTUSSIS VACCINE
     Indication: IMMUNISATION
     Dosage: 0.5 ML
     Route: 030
     Dates: start: 19990413, end: 19990413

REACTIONS (19)
  - Gaze palsy [Recovered/Resolved]
  - Vaccination site inflammation [Unknown]
  - Crying [Unknown]
  - Loss of personal independence in daily activities [Not Recovered/Not Resolved]
  - Facial paralysis [Unknown]
  - Irritability [Unknown]
  - Vaccination site swelling [Unknown]
  - Developmental delay [Not Recovered/Not Resolved]
  - Speech disorder [Recovered/Resolved]
  - Tremor [Unknown]
  - Syncope [Recovered/Resolved]
  - Loss of consciousness [Recovered/Resolved]
  - Syndactyly [Unknown]
  - Paralysis [Recovering/Resolving]
  - Seizure [Not Recovered/Not Resolved]
  - Kyphosis [Unknown]
  - Chills [Unknown]
  - Vaccination site pain [Unknown]
  - Lordosis [Unknown]

NARRATIVE: CASE EVENT DATE: 19990413
